FAERS Safety Report 6261635-7 (Version None)
Quarter: 2009Q3

REPORT INFORMATION
  Report Type: 
  Country: None (occurrence: None)
  Receive Date: 20090707
  Receipt Date: 20090707
  Transmission Date: 20100115
  Serious: Yes (Hospitalization)
  Sender: FDA-Public Use
  Company Number: None

PATIENT
  Sex: Male
  Weight: 62 kg

DRUGS (4)
  1. FLUOROURACIL [Suspect]
     Dosage: 10752 MG
     Dates: end: 20090617
  2. BEVACIZUMAB (RHUMAB VEGF) [Suspect]
     Dosage: 710 MG
     Dates: end: 20090617
  3. LEUCOVORIN CALCIUM [Suspect]
     Dosage: 1536 MG
     Dates: end: 20090617
  4. ELOXATIN [Suspect]
     Dosage: 326 MG
     Dates: end: 20090617

REACTIONS (1)
  - PERITONSILLAR ABSCESS [None]
